FAERS Safety Report 7149537-5 (Version None)
Quarter: 2010Q4

REPORT INFORMATION
  Report Type: 
  Country: None (occurrence: None)
  Receive Date: 20101209
  Receipt Date: 20101124
  Transmission Date: 20110411
  Serious: Yes (Life-Threatening)
  Sender: FDA-Public Use
  Company Number: ES-PFIZER INC-ES-WYE-G06904210

PATIENT
  Age: 42 Year
  Sex: Female

DRUGS (4)
  1. VANDRAL [Suspect]
     Indication: DEPRESSION
     Dosage: 75 MG, 1X/DAY
     Route: 048
  2. TRANKIMAZIN [Suspect]
     Indication: ANXIETY
     Dosage: 1 MG, 1X/DAY
     Route: 048
  3. ZAMENE [Concomitant]
     Route: 048
  4. METHOTREXATE [Concomitant]
     Route: 048

REACTIONS (2)
  - INTENTIONAL OVERDOSE [None]
  - SUICIDE ATTEMPT [None]
